FAERS Safety Report 19573202 (Version 3)
Quarter: 2021Q3

REPORT INFORMATION
  Report Type: Report from Study
  Country: US (occurrence: US)
  Receive Date: 20210715
  Receipt Date: 20210915
  Transmission Date: 20211014
  Serious: No
  Sender: FDA-Public Use
  Company Number: US-ACADIA PHARMACEUTICALS INC.-ACA-2021-PIM-002319

PATIENT
  Sex: Female

DRUGS (2)
  1. NUPLAZID [Suspect]
     Active Substance: PIMAVANSERIN TARTRATE
     Indication: PARKINSON^S DISEASE
     Dosage: 34 MILLIGRAM, QD
     Route: 048
     Dates: start: 20210607
  2. NUPLAZID [Suspect]
     Active Substance: PIMAVANSERIN TARTRATE
     Indication: PARKINSON^S DISEASE
     Dosage: 10 MILLIGRAM, BID
     Route: 048

REACTIONS (9)
  - Screaming [Not Recovered/Not Resolved]
  - Somnolence [Unknown]
  - Inappropriate schedule of product administration [Not Recovered/Not Resolved]
  - Somnolence [Not Recovered/Not Resolved]
  - Abnormal behaviour [Not Recovered/Not Resolved]
  - Depression [Unknown]
  - Underdose [Not Recovered/Not Resolved]
  - Hypotension [Unknown]
  - Lethargy [Unknown]
